FAERS Safety Report 17559143 (Version 2)
Quarter: 2020Q4

REPORT INFORMATION
  Report Type: Report from Study
  Country: None (occurrence: US)
  Receive Date: 20200319
  Receipt Date: 20201014
  Transmission Date: 20210113
  Serious: Yes (Hospitalization, Other)
  Sender: FDA-Public Use
  Company Number: US-ABBVIE-20K-163-3327249-00

PATIENT
  Age: 59 Year
  Sex: Male

DRUGS (1)
  1. HUMIRA [Suspect]
     Active Substance: ADALIMUMAB
     Indication: PSORIASIS
     Dosage: CITRATE FREE
     Route: 058

REACTIONS (8)
  - Blood potassium decreased [Unknown]
  - Calcium deficiency [Unknown]
  - Sinusitis [Recovering/Resolving]
  - Blood magnesium decreased [Recovering/Resolving]
  - Cerebrovascular accident [Recovered/Resolved]
  - Blood electrolytes decreased [Recovered/Resolved]
  - Cerebrovascular accident [Recovered/Resolved]
  - Asthma [Recovered/Resolved]

NARRATIVE: CASE EVENT DATE: 20151226
